FAERS Safety Report 9181784 (Version 1)
Quarter: 2013Q1

REPORT INFORMATION
  Report Type: Report from Study
  Country: CA (occurrence: CA)
  Receive Date: 20130322
  Receipt Date: 20130322
  Transmission Date: 20140127
  Serious: Yes (Other)
  Sender: FDA-Public Use
  Company Number: CA-JNJFOC-20130307561

PATIENT
  Age: 39 Year
  Sex: Male
  Weight: 84.6 kg

DRUGS (6)
  1. REMICADE [Suspect]
     Indication: COLITIS ULCERATIVE
     Route: 042
     Dates: start: 20120917
  2. PREDNISONE [Concomitant]
     Route: 048
  3. IMURAN [Concomitant]
     Route: 048
  4. CAL-D-OR [Concomitant]
     Route: 065
  5. FOSAMAX [Concomitant]
     Route: 048
  6. SALOFALK [Concomitant]
     Route: 054

REACTIONS (2)
  - Eye haemorrhage [Recovered/Resolved]
  - Oesophageal pain [Recovered/Resolved]
